FAERS Safety Report 5535389-3 (Version None)
Quarter: 2007Q4

REPORT INFORMATION
  Report Type: 
  Country: None (occurrence: None)
  Receive Date: 20071206
  Receipt Date: 20071127
  Transmission Date: 20080405
  Serious: Yes (Disabling, Other)
  Sender: FDA-Public Use
  Company Number: US-PURDUE-USA_2007_0030311

PATIENT
  Sex: Male

DRUGS (6)
  1. OXYCONTIN [Suspect]
     Indication: BACK PAIN
     Dosage: UNK MG, SEE TEXT
     Route: 048
     Dates: end: 20071101
  2. OXYCONTIN [Suspect]
     Indication: BACK PAIN
     Dosage: 5 MG, SEE TEXT
     Route: 048
  3. CATAPRES [Concomitant]
     Indication: WITHDRAWAL SYNDROME
     Dosage: UNK MG, UNK
     Route: 048
  4. KLONOPIN [Concomitant]
     Indication: DRUG USE FOR UNKNOWN INDICATION
     Dosage: UNK MG, UNK
     Route: 048
  5. NEXIUM [Concomitant]
     Indication: DRUG USE FOR UNKNOWN INDICATION
     Dosage: UNK MG, UNK
     Route: 048
  6. OXYIR CAPSULES 5 MG [Suspect]
     Dosage: 5 MG, SEE TEXT
     Route: 048

REACTIONS (12)
  - CONSTIPATION [None]
  - FALL [None]
  - FEELING COLD [None]
  - HYPERHIDROSIS [None]
  - INADEQUATE ANALGESIA [None]
  - INTENTIONAL DRUG MISUSE [None]
  - INTERVERTEBRAL DISC DISORDER [None]
  - PARAESTHESIA [None]
  - VISION BLURRED [None]
  - VISUAL ACUITY REDUCED [None]
  - WEIGHT INCREASED [None]
  - WITHDRAWAL SYNDROME [None]
